FAERS Safety Report 21902643 (Version 1)
Quarter: 2023Q1

REPORT INFORMATION
  Report Type: Spontaneous
  Country: US (occurrence: US)
  Receive Date: 20230124
  Receipt Date: 20230124
  Transmission Date: 20230418
  Serious: No
  Sender: FDA-Public Use
  Company Number: US-TEVA-2023-US-2845470

PATIENT
  Age: 7 Year
  Sex: Male

DRUGS (1)
  1. METHYLPHENIDATE HYDROCHLORIDE [Suspect]
     Active Substance: METHYLPHENIDATE HYDROCHLORIDE
     Indication: Attention deficit hyperactivity disorder
     Dosage: 18 MILLIGRAM, TABLETS - EXTENDED / SUSTAINED RELEASE
     Route: 065

REACTIONS (5)
  - Anxiety [Unknown]
  - Depressed mood [Unknown]
  - Encopresis [Unknown]
  - Sleep disorder [Unknown]
  - Eating disorder [Unknown]
